FAERS Safety Report 18517420 (Version 1)
Quarter: 2020Q4

REPORT INFORMATION
  Report Type: Spontaneous
  Country: CH (occurrence: CH)
  Receive Date: 20201118
  Receipt Date: 20201118
  Transmission Date: 20210114
  Serious: Yes (Other)
  Sender: FDA-Public Use
  Company Number: CH-ROCHE-2712133

PATIENT
  Age: 18 Year
  Sex: Male

DRUGS (2)
  1. HEMLIBRA [Suspect]
     Active Substance: EMICIZUMAB-KXWH
     Indication: CONNECTIVE TISSUE DISORDER
     Route: 065
  2. HEMLIBRA [Suspect]
     Active Substance: EMICIZUMAB-KXWH
     Indication: PLASMINOGEN ACTIVATOR INHIBITOR TYPE 1 DEFICIENCY

REACTIONS (3)
  - Myalgia [Unknown]
  - Haemarthrosis [Unknown]
  - Syncope [Unknown]
